FAERS Safety Report 20090250 (Version 1)
Quarter: 2021Q4

REPORT INFORMATION
  Report Type: Spontaneous
  Country: CN (occurrence: CN)
  Receive Date: 20211119
  Receipt Date: 20211119
  Transmission Date: 20220303
  Serious: Yes (Life-Threatening)
  Sender: FDA-Public Use
  Company Number: CN-BAYER-2021A246938

PATIENT
  Age: 52 Year
  Sex: Male

DRUGS (2)
  1. PRIMOVIST [Suspect]
     Active Substance: GADOXETATE DISODIUM
     Indication: Magnetic resonance imaging abdominal
     Dosage: 0.025 MMOL/KG, ONCE
     Route: 042
  2. PRIMOVIST [Suspect]
     Active Substance: GADOXETATE DISODIUM
     Indication: Hepatocellular carcinoma

REACTIONS (2)
  - Thrombocytopenia [Recovered/Resolved]
  - Disseminated intravascular coagulation [Recovered/Resolved]
